FAERS Safety Report 23004044 (Version 3)
Quarter: 2023Q4

REPORT INFORMATION
  Report Type: Report from Study
  Country: CA (occurrence: US)
  Receive Date: 20230928
  Receipt Date: 20231107
  Transmission Date: 20240109
  Serious: Yes (Hospitalization)
  Sender: FDA-Public Use
  Company Number: CA-SANDOZ-SDZ2023CA026221

PATIENT
  Sex: Female
  Weight: 93.64 kg

DRUGS (2)
  1. TREPROSTINIL [Suspect]
     Active Substance: TREPROSTINIL
     Indication: Pulmonary arterial hypertension
     Dosage: 39.25 NG/KG/MIN, CONT
     Route: 042
     Dates: start: 20220801
  2. SILDENAFIL CITRATE [Concomitant]
     Active Substance: SILDENAFIL CITRATE
     Indication: Product used for unknown indication
     Dosage: UNK
     Route: 065

REACTIONS (9)
  - Presyncope [Unknown]
  - Blood pressure decreased [Unknown]
  - Chest pain [Unknown]
  - Complication associated with device [Unknown]
  - Cardiac disorder [Unknown]
  - Lung disorder [Unknown]
  - Hypersomnia [Unknown]
  - Balance disorder [Unknown]
  - Blood creatinine increased [Unknown]
